FAERS Safety Report 17819757 (Version 1)
Quarter: 2020Q2

REPORT INFORMATION
  Report Type: Spontaneous
  Country: US (occurrence: US)
  Receive Date: 20200522
  Receipt Date: 20200522
  Transmission Date: 20200714
  Serious: No
  Sender: FDA-Public Use
  Company Number: None

PATIENT
  Age: 56 Year
  Sex: Male
  Weight: 48.53 kg

DRUGS (26)
  1. REMDESIVIR (EUA) 100 MGVIAL [Suspect]
     Active Substance: REMDESIVIR
     Indication: COVID-19
     Dosage: EVERY 24 HR
     Route: 042
     Dates: start: 20200512, end: 20200514
  2. INSULIN [Concomitant]
     Active Substance: INSULIN NOS
  3. ACETAMINOPHEN. [Concomitant]
     Active Substance: ACETAMINOPHEN
  4. DESMOPRESSIN [Concomitant]
     Active Substance: DESMOPRESSIN
  5. ENOXAPARIN [Concomitant]
     Active Substance: ENOXAPARIN
  6. ALBUMIN [Concomitant]
     Active Substance: ALBUMIN HUMAN
  7. FAMOTIDINE. [Concomitant]
     Active Substance: FAMOTIDINE
  8. KETAMINE [Concomitant]
     Active Substance: KETAMINE
  9. ROCURONIUM [Concomitant]
     Active Substance: ROCURONIUM BROMIDE
  10. CLONAZEPAM. [Concomitant]
     Active Substance: CLONAZEPAM
  11. HEPARIN [Concomitant]
     Active Substance: HEPARIN SODIUM
  12. MIDODRINE [Concomitant]
     Active Substance: MIDODRINE
  13. PHENYLEPHRINE [Concomitant]
     Active Substance: PHENYLEPHRINE HYDROCHLORIDE
  14. CEFTRIAXONE. [Concomitant]
     Active Substance: CEFTRIAXONE
  15. EPOPROSTENOL. [Concomitant]
     Active Substance: EPOPROSTENOL
  16. REMDESIVIR (EUA) 100MG VIAL [Suspect]
     Active Substance: REMDESIVIR
     Indication: COVID-19
     Route: 042
     Dates: start: 20200511, end: 20200511
  17. AZITHROMYCIN ANHYDROUS. [Concomitant]
     Active Substance: AZITHROMYCIN ANHYDROUS
  18. DOCUSATE [Concomitant]
     Active Substance: DOCUSATE
  19. DOPAMINE [Concomitant]
     Active Substance: DOPAMINE HYDROCHLORIDE
  20. HYDROMORPHONE [Concomitant]
     Active Substance: HYDROMORPHONE
  21. NOREPINEPHRINE. [Concomitant]
     Active Substance: NOREPINEPHRINE
  22. BUMETANIDE. [Concomitant]
     Active Substance: BUMETANIDE
  23. FENTANYL. [Concomitant]
     Active Substance: FENTANYL
  24. FUROSEMIDE. [Concomitant]
     Active Substance: FUROSEMIDE
  25. PROPOFOL. [Concomitant]
     Active Substance: PROPOFOL
  26. SENNOSIDES. [Concomitant]
     Active Substance: SENNOSIDES

REACTIONS (4)
  - Acute kidney injury [None]
  - Clinical trial participant [None]
  - Renal replacement therapy [None]
  - Product use in unapproved indication [None]

NARRATIVE: CASE EVENT DATE: 20200514
